FAERS Safety Report 8544289-6 (Version None)
Quarter: 2012Q3

REPORT INFORMATION
  Report Type: 
  Country: None (occurrence: None)
  Receive Date: 20120727
  Receipt Date: 20120723
  Transmission Date: 20120928
  Serious: Yes (Hospitalization)
  Sender: FDA-Public Use
  Company Number: IT-PFIZER INC-2012179664

PATIENT
  Age: 25 Year
  Sex: Male

DRUGS (3)
  1. ALPRAZOLAM [Suspect]
     Indication: SELF INJURIOUS BEHAVIOUR
     Dosage: 7.5 MG, TOTAL DOSE
     Route: 048
     Dates: start: 20120517, end: 20120517
  2. STILNOX [Suspect]
     Indication: SELF INJURIOUS BEHAVIOUR
     Dosage: 50 MG, TOTAL DOSE
     Route: 048
     Dates: start: 20120517, end: 20120517
  3. SERTRALINE HYDROCHLORIDE [Suspect]
     Indication: SELF INJURIOUS BEHAVIOUR
     Dosage: 6000 MG, TOTAL DOSE
     Route: 048
     Dates: start: 20120517, end: 20120517

REACTIONS (3)
  - INTENTIONAL OVERDOSE [None]
  - VOMITING [None]
  - SELF INJURIOUS BEHAVIOUR [None]
